FAERS Safety Report 14035586 (Version 1)
Quarter: 2017Q4

REPORT INFORMATION
  Report Type: Spontaneous
  Country: US (occurrence: US)
  Receive Date: 20171003
  Receipt Date: 20171003
  Transmission Date: 20180321
  Serious: Yes (Death, Other)
  Sender: FDA-Public Use
  Company Number: US-CELGENEUS-USA-2016016116

PATIENT

DRUGS (3)
  1. ABRAXANE [Suspect]
     Active Substance: PACLITAXEL
     Indication: PANCREATIC CARCINOMA METASTATIC
     Dosage: 125 MILLIGRAM/SQ. METER
     Route: 041
  2. GEMCITABINE [Suspect]
     Active Substance: GEMCITABINE\GEMCITABINE HYDROCHLORIDE
     Indication: PANCREATIC CARCINOMA METASTATIC
     Dosage: 1000 MILLIGRAM/SQ. METER
     Route: 041
  3. APATORSEN [Suspect]
     Active Substance: APATORSEN
     Indication: PANCREATIC CARCINOMA METASTATIC
     Dosage: 600 MILLIGRAM
     Route: 041

REACTIONS (35)
  - Death [Fatal]
  - Peripheral embolism [Unknown]
  - Neuropathy peripheral [Unknown]
  - Thrombocytopenia [Unknown]
  - Hypersensitivity [Unknown]
  - Hypomagnesaemia [Unknown]
  - Neutropenia [Unknown]
  - Fall [Unknown]
  - Stomatitis [Unknown]
  - Dehydration [Unknown]
  - Anaemia [Unknown]
  - Insomnia [Unknown]
  - Sinus tachycardia [Unknown]
  - Rash [Unknown]
  - Constipation [Unknown]
  - Cytopenia [Unknown]
  - Rash maculo-papular [Unknown]
  - Oedema peripheral [Unknown]
  - Pruritus [Unknown]
  - Weight decreased [Unknown]
  - Fatigue [Unknown]
  - Hypokalaemia [Unknown]
  - Nausea [Unknown]
  - Temperature intolerance [Unknown]
  - Pancreatic carcinoma metastatic [Unknown]
  - Diarrhoea [Unknown]
  - Vomiting [Unknown]
  - Rash generalised [Unknown]
  - Dysphagia [Unknown]
  - Leukopenia [Unknown]
  - Decreased appetite [Unknown]
  - Hyperglycaemia [Unknown]
  - Mucosal inflammation [Unknown]
  - Dysgeusia [Unknown]
  - Myalgia [Unknown]
